FAERS Safety Report 14282613 (Version 6)
Quarter: 2018Q2

REPORT INFORMATION
  Report Type: Spontaneous
  Country: US (occurrence: US)
  Receive Date: 20171213
  Receipt Date: 20180430
  Transmission Date: 20180711
  Serious: Yes (Hospitalization)
  Sender: FDA-Public Use
  Company Number: US-B.I. PHARMACEUTICALS,INC./RIDGEFIELD-2017-BI-066033

PATIENT
  Sex: Female

DRUGS (3)
  1. MICARDIS [Suspect]
     Active Substance: TELMISARTAN
     Indication: HYPERTENSION
     Route: 065
     Dates: start: 2012
  2. TELMISARTAN. [Suspect]
     Active Substance: TELMISARTAN
     Indication: HYPERTENSION
     Route: 065
  3. MICARDIS [Suspect]
     Active Substance: TELMISARTAN
     Dosage: BROKE IN HALF 20MG IN THE MORNING AND 20MG IN THE EVENING
     Route: 065

REACTIONS (3)
  - Product selection error [Unknown]
  - Drug ineffective [Unknown]
  - Blood pressure increased [Unknown]
